FAERS Safety Report 4773588-9 (Version None)
Quarter: 2005Q3

REPORT INFORMATION
  Report Type: 
  Country: None (occurrence: None)
  Receive Date: 20050914
  Receipt Date: 20050810
  Transmission Date: 20060218
  Serious: Yes (Other)
  Sender: FDA-Public Use
  Company Number: 414142

PATIENT
  Age: 65 Year
  Sex: Female
  Weight: 54.4 kg

DRUGS (3)
  1. BONIVA [Suspect]
     Indication: OSTEOPOROSIS
     Dosage: 150 MG 1 PER MONTH ORAL
     Route: 048
     Dates: start: 20050806
  2. BONIVA [Suspect]
     Indication: PROPHYLAXIS
     Dosage: 150 MG 1 PER MONTH ORAL
     Route: 048
     Dates: start: 20050806
  3. ROXICET (OXYCODONE/PARACETAMOL) [Concomitant]

REACTIONS (5)
  - BONE PAIN [None]
  - DIARRHOEA [None]
  - HEADACHE [None]
  - MUSCULOSKELETAL STIFFNESS [None]
  - NAUSEA [None]
